FAERS Safety Report 25366891 (Version 1)
Quarter: 2025Q2

REPORT INFORMATION
  Report Type: Spontaneous
  Country: BR (occurrence: BR)
  Receive Date: 20250528
  Receipt Date: 20250528
  Transmission Date: 20250717
  Serious: Yes (Death, Other)
  Sender: AMGEN
  Company Number: BR-SERVIER-S24004024

PATIENT

DRUGS (1)
  1. IVABRADINE [Suspect]
     Active Substance: IVABRADINE
     Indication: Cardiac dysfunction
     Dosage: 5 MG, BID
     Route: 065

REACTIONS (7)
  - Sepsis [Fatal]
  - Pulmonary embolism [Fatal]
  - Disease progression [Fatal]
  - Drug ineffective for unapproved indication [Fatal]
  - Photopsia [Fatal]
  - Bradycardia [Fatal]
  - Ejection fraction decreased [Fatal]
